FAERS Safety Report 4877066-8 (Version None)
Quarter: 2006Q1

REPORT INFORMATION
  Report Type: 
  Country: None (occurrence: None)
  Receive Date: 20060110
  Receipt Date: 20030605
  Transmission Date: 20060701
  Serious: Yes (Hospitalization, Disabling)
  Sender: FDA-Public Use
  Company Number: US-MERCK-0306USA00794

PATIENT
  Age: 32 Year
  Sex: Female
  Weight: 114 kg

DRUGS (3)
  1. VIOXX [Suspect]
     Indication: BACK PAIN
     Route: 048
     Dates: start: 20000530, end: 20020214
  2. ASPIRIN [Concomitant]
     Route: 065
  3. ADVIL [Concomitant]
     Route: 065

REACTIONS (3)
  - FULL BLOOD COUNT DECREASED [None]
  - HYPERTENSION [None]
  - INTERVERTEBRAL DISC DISORDER [None]
